FAERS Safety Report 17272516 (Version 1)
Quarter: 2019Q4

REPORT INFORMATION
  Report Type: Spontaneous
  Country: US (occurrence: US)
  Receive Date: 20191223
  Receipt Date: 20191223
  Transmission Date: 20200122
  Serious: Yes (Hospitalization)
  Sender: FDA-Public Use
  Company Number: None

PATIENT
  Sex: Male
  Weight: 89.2 kg

DRUGS (7)
  1. PEG/L-ASPARAGINASE [Concomitant]
     Active Substance: PEGASPARGASE
  2. METHOTREXATE. [Concomitant]
     Active Substance: METHOTREXATE
  3. CYCLOPHOSPHAMIDE. [Suspect]
     Active Substance: CYCLOPHOSPHAMIDE
  4. DEXAMETHASONE. [Concomitant]
     Active Substance: DEXAMETHASONE
  5. RITUXIMAB (MOAB C2B8 ANTI CD20, CHIMERIC) [Concomitant]
     Active Substance: RITUXIMAB
  6. VINCRISTINE SULFATE. [Concomitant]
     Active Substance: VINCRISTINE SULFATE
  7. DOXORUBICIN HYDROCHLORIDE. [Concomitant]
     Active Substance: DOXORUBICIN HYDROCHLORIDE

REACTIONS (8)
  - Paraesthesia [None]
  - Hypoaesthesia [None]
  - Seizure [None]
  - Cerebral venous thrombosis [None]
  - Migraine [None]
  - Hemiparesis [None]
  - Grip strength decreased [None]
  - Dysarthria [None]

NARRATIVE: CASE EVENT DATE: 20191203
